FAERS Safety Report 15808952 (Version 3)
Quarter: 2021Q2

REPORT INFORMATION
  Report Type: Spontaneous
  Country: US (occurrence: US)
  Receive Date: 20190110
  Receipt Date: 20210430
  Transmission Date: 20210716
  Serious: Yes (Other)
  Sender: FDA-Public Use
  Company Number: US-PFIZER INC-2019006045

PATIENT
  Age: 79 Year
  Sex: Female

DRUGS (2)
  1. PREGABALIN. [Suspect]
     Active Substance: PREGABALIN
     Indication: CHRONIC MYELOID LEUKAEMIA
     Dosage: 50 MG
     Route: 048
  2. PREGABALIN. [Suspect]
     Active Substance: PREGABALIN
     Indication: TOXIC NEUROPATHY

REACTIONS (1)
  - Renal impairment [Unknown]
